FAERS Safety Report 4353106-X (Version None)
Quarter: 2004Q2

REPORT INFORMATION
  Report Type: 
  Country: None (occurrence: None)
  Receive Date: 20040429
  Receipt Date: 20040422
  Transmission Date: 20050107
  Serious: Yes (Life-Threatening, Hospitalization)
  Sender: FDA-Public Use
  Company Number: 2004SE02304

PATIENT
  Age: 73 Year
  Sex: Female

DRUGS (10)
  1. ARIMIDEX [Suspect]
     Indication: BREAST CANCER
     Dosage: 1 MG DAILY PO
     Route: 048
     Dates: start: 19990601, end: 20030116
  2. NOLVADEX [Suspect]
     Indication: BREAST CANCER
     Dosage: 20 MG DAILY PO
     Route: 048
     Dates: start: 19990601, end: 20030808
  3. NOROXIN [Concomitant]
  4. NITROGLYCERIN [Concomitant]
  5. ASCAL [Concomitant]
  6. FUROSEMIDE [Concomitant]
  7. SELOKEN [Concomitant]
  8. LASIX [Concomitant]
  9. NEWACE [Concomitant]
  10. SELECTIN [Concomitant]

REACTIONS (1)
  - CORONARY ARTERY STENOSIS [None]
